FAERS Safety Report 13367842 (Version 1)
Quarter: 2017Q1

REPORT INFORMATION
  Report Type: Spontaneous
  Country: CA (occurrence: CA)
  Receive Date: 20170324
  Receipt Date: 20170324
  Transmission Date: 20170429
  Serious: Yes (Hospitalization, Other)
  Sender: FDA-Public Use
  Company Number: CA-TEVA-751797ACC

PATIENT
  Age: 65 Year
  Sex: Male
  Weight: 79.45 kg

DRUGS (4)
  1. ALTACE [Suspect]
     Active Substance: RAMIPRIL
     Indication: PAIN
     Dosage: 1 DOSAGE FORMS DAILY;
     Route: 048
  2. CRESTOR - 10MG [Concomitant]
     Route: 048
  3. ALTACE [Suspect]
     Active Substance: RAMIPRIL
     Indication: HYPERTENSION
  4. ACETAMINOPHEN AND CODEINE [Suspect]
     Active Substance: ACETAMINOPHEN\CODEINE PHOSPHATE
     Indication: PAIN
     Dosage: 2 DOSAGE FORMS DAILY;
     Route: 048

REACTIONS (2)
  - Drug eruption [Recovered/Resolved]
  - Renal impairment [Recovered/Resolved]
